FAERS Safety Report 8007017-9 (Version None)
Quarter: 2011Q4

REPORT INFORMATION
  Report Type: 
  Country: None (occurrence: None)
  Receive Date: 20111227
  Receipt Date: 20111222
  Transmission Date: 20120403
  Serious: Yes (Other)
  Sender: FDA-Public Use
  Company Number: US-PFIZER INC-2011312585

PATIENT
  Sex: Male
  Weight: 104 kg

DRUGS (5)
  1. WARFARIN [Concomitant]
     Dosage: 3 MG, 2X/DAY
  2. LIPITOR [Suspect]
     Indication: BLOOD CHOLESTEROL INCREASED
     Dosage: 40 MG, DAILY
     Dates: end: 20100101
  3. AMIODARONE [Concomitant]
     Dosage: UNK,DAILY
  4. LIPITOR [Suspect]
     Dosage: 80 MG, DAILY
     Dates: start: 20110801, end: 20110901
  5. LIPITOR [Suspect]
     Dosage: 60 MG, DAILY
     Dates: start: 20100101, end: 20110801

REACTIONS (6)
  - MUSCULOSKELETAL STIFFNESS [None]
  - BALANCE DISORDER [None]
  - CARDIAC DISORDER [None]
  - MUSCULAR WEAKNESS [None]
  - LOSS OF CONTROL OF LEGS [None]
  - MUSCLE DISORDER [None]
